FAERS Safety Report 4784495-X (Version None)
Quarter: 2005Q3

REPORT INFORMATION
  Report Type: 
  Country: None (occurrence: None)
  Receive Date: 20050930
  Receipt Date: 20050923
  Transmission Date: 20060218
  Serious: Yes (Other)
  Sender: FDA-Public Use
  Company Number: CA-GLAXOSMITHKLINE-A0576038A

PATIENT
  Age: 34 Year
  Sex: Female
  Weight: 68.2 kg

DRUGS (2)
  1. PAXIL [Suspect]
     Indication: DRUG USE FOR UNKNOWN INDICATION
     Dosage: 20MG UNKNOWN
     Route: 065
     Dates: start: 19990913
  2. MINOVRAL 21 [Concomitant]
     Dates: end: 20041201

REACTIONS (1)
  - GALACTORRHOEA [None]
